FAERS Safety Report 15008844 (Version 3)
Quarter: 2018Q4

REPORT INFORMATION
  Report Type: Report from Study
  Country: JP (occurrence: JP)
  Receive Date: 20180613
  Receipt Date: 20181004
  Transmission Date: 20190204
  Serious: Yes (Life-Threatening, Hospitalization, Other)
  Sender: FDA-Public Use
  Company Number: JP-BIOGEN-2018BI00594083

PATIENT
  Age: 3 Month
  Sex: Male
  Weight: 4.14 kg

DRUGS (10)
  1. EMLA [Concomitant]
     Active Substance: LIDOCAINE\PRILOCAINE
     Dosage: SMALL QUANTITY
     Route: 062
     Dates: start: 20180417, end: 20180417
  2. SPINRAZA [Suspect]
     Active Substance: NUSINERSEN
     Route: 037
     Dates: start: 20180403, end: 20180403
  3. SPINRAZA [Suspect]
     Active Substance: NUSINERSEN
     Route: 037
     Dates: start: 20180522, end: 20180522
  4. EMLA [Concomitant]
     Active Substance: LIDOCAINE\PRILOCAINE
     Dosage: SMALL QUANTITY
     Route: 062
     Dates: start: 20180403, end: 20180403
  5. ATARAX-P [Concomitant]
     Active Substance: HYDROXYZINE HYDROCHLORIDE
     Indication: ANAESTHESIA PROCEDURE
     Route: 050
     Dates: start: 20180522, end: 20180522
  6. SPINRAZA [Suspect]
     Active Substance: NUSINERSEN
     Indication: SPINAL MUSCULAR ATROPHY
     Route: 037
     Dates: start: 20180320, end: 20180320
  7. EMLA [Concomitant]
     Active Substance: LIDOCAINE\PRILOCAINE
     Indication: ANAESTHESIA PROCEDURE
     Dosage: SMALL QUANTITY
     Route: 062
     Dates: start: 20180320, end: 20180320
  8. SOSEGON [Concomitant]
     Active Substance: PENTAZOCINE
     Indication: ANAESTHESIA PROCEDURE
     Route: 050
     Dates: start: 20180522, end: 20180522
  9. SPINRAZA [Suspect]
     Active Substance: NUSINERSEN
     Route: 037
     Dates: start: 20180417, end: 20180417
  10. EMLA [Concomitant]
     Active Substance: LIDOCAINE\PRILOCAINE
     Dosage: SMALL QUANTITY
     Route: 062
     Dates: start: 20180522, end: 20180522

REACTIONS (1)
  - Laryngomalacia [Recovered/Resolved with Sequelae]

NARRATIVE: CASE EVENT DATE: 20180408
